FAERS Safety Report 4811885-9 (Version None)
Quarter: 2005Q4

REPORT INFORMATION
  Report Type: 
  Country: None (occurrence: None)
  Receive Date: 20051027
  Receipt Date: 20051027
  Transmission Date: 20060501
  Serious: Yes (Other)
  Sender: FDA-Public Use
  Company Number: None

PATIENT
  Age: 48 Year
  Sex: Female
  Weight: 71.6683 kg

DRUGS (1)
  1. YASMIN [Suspect]
     Indication: CONTRACEPTION
     Dosage: 1 TABLET DAILEY    OVER 28 DAY CYCLE    PO
     Route: 048
     Dates: start: 20050203, end: 20050719

REACTIONS (10)
  - ABDOMINAL DISTENSION [None]
  - DEPRESSION [None]
  - HEADACHE [None]
  - HYPERHIDROSIS [None]
  - MUSCLE SPASMS [None]
  - NOCTURIA [None]
  - PALPITATIONS [None]
  - THROMBOSIS [None]
  - VISUAL DISTURBANCE [None]
  - WEIGHT INCREASED [None]
